FAERS Safety Report 7878894-7 (Version None)
Quarter: 2011Q4

REPORT INFORMATION
  Report Type: 
  Country: None (occurrence: None)
  Receive Date: 20111021
  Receipt Date: 20110722
  Transmission Date: 20120403
  Serious: Yes (Other)
  Sender: FDA-Public Use
  Company Number: 2011SP034537

PATIENT

DRUGS (1)
  1. TEMODAR [Suspect]
     Indication: GLIOBLASTOMA
     Dosage: PO
     Route: 048

REACTIONS (1)
  - HEPATIC ENZYME INCREASED [None]
